FAERS Safety Report 15468483 (Version 3)
Quarter: 2018Q4

REPORT INFORMATION
  Report Type: Spontaneous
  Country: CZ (occurrence: CZ)
  Receive Date: 20181005
  Receipt Date: 20181206
  Transmission Date: 20190204
  Serious: Yes (Life-Threatening, Hospitalization)
  Sender: FDA-Public Use
  Company Number: CZ-PFIZER INC-2018400844

PATIENT

DRUGS (4)
  1. SUTENT [Suspect]
     Active Substance: SUNITINIB MALATE
     Dosage: 12.5 MG, ALTERNATE DAY
     Dates: start: 2015
  2. SUTENT [Suspect]
     Active Substance: SUNITINIB MALATE
     Indication: INFLAMMATORY MYOFIBROBLASTIC TUMOUR
     Dosage: 12.5 MG, 1X/DAY
     Dates: start: 2015, end: 2015
  3. VINBLASTINE [Concomitant]
     Active Substance: VINBLASTINE
     Dosage: 0.4 MG/M2, WEEKLY
     Dates: start: 2015, end: 201608
  4. VINBLASTINE [Concomitant]
     Active Substance: VINBLASTINE
     Indication: INFLAMMATORY MYOFIBROBLASTIC TUMOUR
     Dosage: 2 MG/M2, WEEKLY

REACTIONS (2)
  - Hypoglycaemia [Recovered/Resolved]
  - Product use in unapproved indication [Unknown]

NARRATIVE: CASE EVENT DATE: 2015
